FAERS Safety Report 5983855-9 (Version None)
Quarter: 2008Q4

REPORT INFORMATION
  Report Type: 
  Country: None (occurrence: None)
  Receive Date: 20081208
  Receipt Date: 20080804
  Transmission Date: 20090506
  Serious: Yes (Other)
  Sender: FDA-Public Use
  Company Number: US-AMGEN-QUU299353

PATIENT
  Sex: Male

DRUGS (1)
  1. ENBREL [Suspect]
     Indication: PSORIATIC ARTHROPATHY
     Route: 058
     Dates: start: 20030201

REACTIONS (11)
  - BURNING SENSATION [None]
  - DEPRESSION [None]
  - DYSPHONIA [None]
  - GROIN PAIN [None]
  - IMMUNE SYSTEM DISORDER [None]
  - MOBILITY DECREASED [None]
  - NODULE [None]
  - PAIN [None]
  - PRURITUS [None]
  - STRESS [None]
  - WEIGHT DECREASED [None]
